FAERS Safety Report 6306737-1 (Version None)
Quarter: 2009Q3

REPORT INFORMATION
  Report Type: 
  Country: None (occurrence: None)
  Receive Date: 20090812
  Receipt Date: 20090722
  Transmission Date: 20100115
  Serious: No
  Sender: FDA-Public Use
  Company Number: A0798253A

PATIENT
  Age: 68 Year
  Sex: Female

DRUGS (2)
  1. VERAMYST [Suspect]
     Indication: SINUS POLYP
     Dosage: 1SPR PER DAY
     Route: 045
     Dates: start: 20090501
  2. SYMBICORT [Concomitant]

REACTIONS (2)
  - OVERDOSE [None]
  - PRODUCT QUALITY ISSUE [None]
